FAERS Safety Report 26068142 (Version 1)
Quarter: 2025Q4

REPORT INFORMATION
  Report Type: Spontaneous
  Country: US (occurrence: US)
  Receive Date: 20251120
  Receipt Date: 20251120
  Transmission Date: 20260117
  Serious: No
  Sender: CSL BEHRING
  Company Number: US-BEH-2025224754

PATIENT
  Sex: Male

DRUGS (32)
  1. HIZENTRA [Suspect]
     Active Substance: HUMAN IMMUNOGLOBULIN G
     Indication: Immunodeficiency common variable
     Dosage: 10 G, QW
     Route: 058
     Dates: start: 20250313
  2. ALBUTEROL [Concomitant]
     Active Substance: ALBUTEROL
  3. AMMONIUM LACTATE [Concomitant]
     Active Substance: AMMONIUM LACTATE
  4. AMMONIUM LACTATE [Concomitant]
     Active Substance: AMMONIUM LACTATE
  5. ANUSOL HC [Concomitant]
     Active Substance: HYDROCORTISONE
  6. ACETAMINOPHEN\CODEINE PHOSPHATE [Concomitant]
     Active Substance: ACETAMINOPHEN\CODEINE PHOSPHATE
     Dosage: 300-30MG
  7. BANOPHEN [Concomitant]
     Active Substance: DIPHENHYDRAMINE HYDROCHLORIDE
     Dosage: 50 MG
  8. BENZONATATE [Concomitant]
     Active Substance: BENZONATATE
     Dosage: 200 MG
  9. Betameth dipropionate [Concomitant]
     Dosage: 0.05%
  10. BUDESONIDE\FORMOTEROL [Concomitant]
     Active Substance: BUDESONIDE\FORMOTEROL
     Dosage: 160-4.5
  11. CIALIS [Concomitant]
     Active Substance: TADALAFIL
     Dosage: 20 MG
  12. Clotrim-b [Concomitant]
  13. CYCLOBENZAPRINE [Concomitant]
     Active Substance: CYCLOBENZAPRINE
     Dosage: 5 MG
  14. DIPHENHYDRAMINE [Concomitant]
     Active Substance: DIPHENHYDRAMINE
     Dosage: 25 MG
  15. EPINEPHRINE [Concomitant]
     Active Substance: EPINEPHRINE
     Dosage: 0.3 MG
  16. ERYTHROMYCIN [Concomitant]
     Active Substance: ERYTHROMYCIN
     Dosage: 5MG/GM
  17. FERROUS SULFATE [Concomitant]
     Active Substance: FERROUS SULFATE
     Dosage: 325MG EC
  18. FLONASE ALLERGY RELIEF [Concomitant]
     Active Substance: FLUTICASONE PROPIONATE
     Dosage: 50MCG
  19. HYQVIA [Concomitant]
     Active Substance: HUMAN IMMUNOGLOBULIN G\HYALURONIDASE (HUMAN RECOMBINANT)
     Dosage: 2,5-200
  20. IBUPROFEN [Concomitant]
     Active Substance: IBUPROFEN
     Dosage: 100/5ML
  21. IPRATROPIUM [Concomitant]
     Active Substance: IPRATROPIUM
  22. LORATADINE [Concomitant]
     Active Substance: LORATADINE
     Dosage: 10 MG
  23. METHYLPREDNISOLONE [Concomitant]
     Active Substance: METHYLPREDNISOLONE
     Dosage: 4 MG
  24. MONTELUKAST [Concomitant]
     Active Substance: MONTELUKAST
     Dosage: 10 MG
  25. OMEPRAZOLE [Concomitant]
     Active Substance: OMEPRAZOLE
     Dosage: 40 MG
  26. ONDANSETRON [Concomitant]
     Active Substance: ONDANSETRON
     Dosage: 4 MG
  27. PAXLOVID [Concomitant]
     Active Substance: NIRMATRELVIR\RITONAVIR
     Dosage: 300-100
  28. SERTRALINE [Concomitant]
     Active Substance: SERTRALINE HYDROCHLORIDE
     Dosage: 100 MG
  29. SYMBICORT [Concomitant]
     Active Substance: BUDESONIDE\FORMOTEROL FUMARATE DIHYDRATE
     Dosage: 160-4.5
  30. TADALAFIL [Concomitant]
     Active Substance: TADALAFIL
     Dosage: 20 MG
  31. TYLENOL [Concomitant]
     Active Substance: ACETAMINOPHEN
     Dosage: 500 MG
  32. ZOLOFT [Concomitant]
     Active Substance: SERTRALINE HYDROCHLORIDE
     Dosage: 100 MG

REACTIONS (1)
  - Fatigue [Not Recovered/Not Resolved]
